FAERS Safety Report 8585947-7 (Version None)
Quarter: 2012Q3

REPORT INFORMATION
  Report Type: 
  Country: None (occurrence: None)
  Receive Date: 20120802
  Receipt Date: 20120802
  Transmission Date: 20120928
  Serious: Yes (Hospitalization)
  Sender: FDA-Public Use
  Company Number: None

PATIENT
  Sex: Female
  Weight: 87.58 kg

DRUGS (2)
  1. CISPLATIN [Suspect]
     Dosage: 159 MG
  2. FLUOROURACIL [Suspect]
     Dosage: 7960 MG

REACTIONS (19)
  - HYPERSENSITIVITY [None]
  - NAUSEA [None]
  - HYPONATRAEMIA [None]
  - URINARY TRACT INFECTION [None]
  - OESOPHAGITIS ULCERATIVE [None]
  - VOMITING [None]
  - NASOPHARYNGEAL CANCER [None]
  - DEHYDRATION [None]
  - SWOLLEN TONGUE [None]
  - MUCOSAL INFLAMMATION [None]
  - RASH [None]
  - HYPOTENSION [None]
  - ALOPECIA [None]
  - SKIN DISCOLOURATION [None]
  - PANCYTOPENIA [None]
  - STOMATITIS [None]
  - DIHYDROPYRIMIDINE DEHYDROGENASE DEFICIENCY [None]
  - HYPOVOLAEMIA [None]
  - FEBRILE NEUTROPENIA [None]
